FAERS Safety Report 8357455-X (Version None)
Quarter: 2012Q2

REPORT INFORMATION
  Report Type: 
  Country: None (occurrence: None)
  Receive Date: 20120511
  Receipt Date: 20120504
  Transmission Date: 20120825
  Serious: Yes (Other)
  Sender: FDA-Public Use
  Company Number: 2011SP058499

PATIENT
  Age: 51 Year
  Sex: Female

DRUGS (4)
  1. REBETOL [Suspect]
     Indication: HEPATITIS C
     Dosage: 400 MG;BID, 600 MG;QD
     Dates: start: 20111215, end: 20111227
  2. REBETOL [Suspect]
     Indication: HEPATITIS C
     Dosage: 400 MG;BID, 600 MG;QD
     Dates: start: 20111021
  3. VICTRELIS [Suspect]
     Indication: HEPATITIS C
     Dosage: 800 MG;TID;PO
     Route: 048
     Dates: start: 20111125, end: 20111227
  4. PEG-INTRON [Suspect]
     Indication: HEPATITIS C
     Dosage: QW
     Dates: start: 20111021, end: 20111227

REACTIONS (4)
  - STOMATITIS [None]
  - ANAEMIA [None]
  - THROAT IRRITATION [None]
  - WEIGHT DECREASED [None]
